FAERS Safety Report 25173403 (Version 2)
Quarter: 2025Q2

REPORT INFORMATION
  Report Type: Report from Study
  Country: US (occurrence: US)
  Receive Date: 20250408
  Receipt Date: 20250507
  Transmission Date: 20250716
  Serious: Yes (Other)
  Sender: PFIZER
  Company Number: US-PFIZER INC-202500013101

PATIENT
  Age: 59 Year
  Sex: Female

DRUGS (3)
  1. TUKYSA [Suspect]
     Active Substance: TUCATINIB
     Dosage: 300 MG TWICE DAILY ORALLY
     Route: 048
     Dates: start: 20241227
  2. TUKYSA [Suspect]
     Active Substance: TUCATINIB
     Dosage: 300 MG TWICE DAILY ORALLY
     Route: 048
     Dates: start: 20241227
  3. CAPECITABINE [Suspect]
     Active Substance: CAPECITABINE

REACTIONS (6)
  - Seizure [Unknown]
  - Alopecia [Unknown]
  - Vomiting [Unknown]
  - Diarrhoea [Unknown]
  - Hepatic enzyme increased [Unknown]
  - Product dose omission in error [Unknown]
